FAERS Safety Report 12555562 (Version 1)
Quarter: 2016Q3

REPORT INFORMATION
  Report Type: Spontaneous
  Country: US (occurrence: US)
  Receive Date: 20160714
  Receipt Date: 20160714
  Transmission Date: 20161109
  Serious: No
  Sender: FDA-Public Use
  Company Number: US-009507513-1607USA004514

PATIENT
  Age: 14 Year
  Sex: Female

DRUGS (2)
  1. SINGULAIR [Suspect]
     Active Substance: MONTELUKAST SODIUM
     Dosage: UNK
     Route: 048
  2. ZYRTEC [Suspect]
     Active Substance: CETIRIZINE HYDROCHLORIDE
     Dosage: UNK

REACTIONS (6)
  - Drug ineffective [Unknown]
  - Somnolence [Unknown]
  - Rash [Unknown]
  - Peripheral swelling [Unknown]
  - Dry eye [Unknown]
  - Eyelid oedema [Unknown]
